FAERS Safety Report 11782353 (Version 1)
Quarter: 2015Q4

REPORT INFORMATION
  Report Type: Spontaneous
  Country: GB (occurrence: GB)
  Receive Date: 20151127
  Receipt Date: 20151127
  Transmission Date: 20160305
  Serious: No
  Sender: FDA-Public Use
  Company Number: GB-LUPIN PHARMACEUTICALS INC.-2015-03077

PATIENT
  Sex: Male

DRUGS (1)
  1. SERTRALINE 50MG TABLETS [Suspect]
     Active Substance: SERTRALINE HYDROCHLORIDE
     Indication: DEPRESSION
     Route: 048

REACTIONS (12)
  - Weight increased [Unknown]
  - Swelling face [Unknown]
  - Gait disturbance [Unknown]
  - Mobility decreased [Unknown]
  - Peripheral swelling [Unknown]
  - Eye swelling [Unknown]
  - Feeling abnormal [Unknown]
  - Fluid retention [Unknown]
  - Inappropriate schedule of drug administration [Unknown]
  - Lacrimation increased [Unknown]
  - Fatigue [Unknown]
  - Blister [Unknown]
